FAERS Safety Report 16362162 (Version 1)
Quarter: 2019Q2

REPORT INFORMATION
  Report Type: Spontaneous
  Country: US (occurrence: US)
  Receive Date: 20190528
  Receipt Date: 20190528
  Transmission Date: 20190711
  Serious: Yes (Other)
  Sender: FDA-Public Use
  Company Number: US-FRESENIUS KABI-FK201905827

PATIENT
  Age: 62 Year
  Sex: Male

DRUGS (6)
  1. MELPHALAN (MANUFACTURER UNKNOWN) [Suspect]
     Active Substance: MELPHALAN
     Dosage: 7MG VIA THE IOA 8MG VIA THE ADTA AND 15MG VIA THE OA
     Route: 013
  2. MELPHALAN (MANUFACTURER UNKNOWN) [Suspect]
     Active Substance: MELPHALAN
     Indication: UVEAL MELANOMA
     Dosage: 3MG VIA THE ANTERIOR DEEP TEMPORAL ARTERY (ADTA) AND 7MG VIA THE OPHTHALMIC ARTERY (OA)
     Route: 013
  3. MELPHALAN (MANUFACTURER UNKNOWN) [Suspect]
     Active Substance: MELPHALAN
     Dosage: 3MG VIA THE ANTERIOR BRANCH OF THE SUPERFICIAL TEMPORAL ARTERY 5MG VIA THE ADTA AND 12MG VIA THE OA
     Route: 013
  4. MELPHALAN (MANUFACTURER UNKNOWN) [Suspect]
     Active Substance: MELPHALAN
     Dosage: 4MG VIA THE ADTA AND 11MG VIA THE OA
     Route: 013
  5. MELPHALAN (MANUFACTURER UNKNOWN) [Suspect]
     Active Substance: MELPHALAN
     Dosage: 3MG VIA THE ADTA AND 12MG VIA THE OA
     Route: 013
  6. MELPHALAN (MANUFACTURER UNKNOWN) [Suspect]
     Active Substance: MELPHALAN
     Dosage: 10 MG VIA THE INFRAORBITAL ARTERY (IOA) 8MG VIA THE ADTA AND 12MG VIA THE OA
     Route: 013

REACTIONS (2)
  - Product use issue [Recovered/Resolved]
  - Erythema [Recovered/Resolved]
